FAERS Safety Report 19809556 (Version 1)
Quarter: 2021Q3

REPORT INFORMATION
  Report Type: Spontaneous
  Country: US (occurrence: US)
  Receive Date: 20210908
  Receipt Date: 20210908
  Transmission Date: 20211014
  Serious: No
  Sender: FDA-Public Use
  Company Number: US-ROCHE-2642807

PATIENT
  Sex: Female
  Weight: 62.6 kg

DRUGS (3)
  1. ALECENSA [Suspect]
     Active Substance: ALECTINIB HYDROCHLORIDE
     Dosage: ONGOING NO
     Route: 048
     Dates: start: 201703, end: 20170926
  2. ALECENSA [Suspect]
     Active Substance: ALECTINIB HYDROCHLORIDE
     Dosage: ONGOING YES
     Route: 048
     Dates: start: 20170926
  3. ALECENSA [Suspect]
     Active Substance: ALECTINIB HYDROCHLORIDE
     Indication: NON-SMALL CELL LUNG CANCER
     Dosage: ONGOING: YES
     Route: 048
     Dates: start: 202001

REACTIONS (2)
  - Product storage error [Unknown]
  - Blood bilirubin increased [Not Recovered/Not Resolved]
